FAERS Safety Report 13248593 (Version 1)
Quarter: 2017Q1

REPORT INFORMATION
  Report Type: Spontaneous
  Country: US (occurrence: US)
  Receive Date: 20170218
  Receipt Date: 20170218
  Transmission Date: 20170428
  Serious: No
  Sender: FDA-Public Use
  Company Number: US-ALLERGAN-1660134US

PATIENT
  Sex: Female
  Weight: 58.5 kg

DRUGS (6)
  1. GENTILE [Concomitant]
     Indication: DRY EYE
     Dosage: UNK UNK, PRN
     Route: 047
  2. RESTASIS [Suspect]
     Active Substance: CYCLOSPORINE
     Indication: DRY EYE
     Dosage: 2 GTT, BID
     Route: 047
  3. SPIRONOLACTONE. [Concomitant]
     Active Substance: SPIRONOLACTONE
     Indication: DIURETIC THERAPY
     Dosage: UNK
     Route: 048
  4. KLOR-CON [Concomitant]
     Active Substance: POTASSIUM CHLORIDE
     Indication: MINERAL SUPPLEMENTATION
     Dosage: UNK UNK, QD
     Route: 048
  5. REFRESH TEARS [Concomitant]
     Active Substance: CARBOXYMETHYLCELLULOSE SODIUM
     Indication: DRY EYE
     Dosage: UNK
     Route: 047
  6. EMYCIN [Concomitant]
     Active Substance: ERYTHROMYCIN
     Indication: DRY EYE
     Dosage: UNK UNK, QHS
     Route: 061

REACTIONS (2)
  - Drug administration error [Unknown]
  - Drug ineffective [Unknown]
